FAERS Safety Report 8591861-3 (Version None)
Quarter: 2012Q3

REPORT INFORMATION
  Report Type: 
  Country: None (occurrence: None)
  Receive Date: 20120814
  Receipt Date: 20120810
  Transmission Date: 20120928
  Serious: Yes (Other)
  Sender: FDA-Public Use
  Company Number: PHHY2012AU064977

PATIENT
  Sex: Female

DRUGS (7)
  1. ACETAMINOPHEN W/ CODEINE [Concomitant]
     Dosage: UNK UKN, UNK
  2. SEREPAX [Concomitant]
     Indication: INSOMNIA
     Dosage: ONCE NIGHTLY
     Route: 048
     Dates: start: 20020101
  3. ZOLEDRONOC ACID [Suspect]
     Dosage: 5 MG
     Route: 042
     Dates: start: 20111021
  4. PANAMAX [Concomitant]
     Indication: PAIN
     Dosage: AS NEEDED
  5. WARFARIN SODIUM [Concomitant]
     Indication: ATRIAL FIBRILLATION
     Dosage: UNK UKN, UNK
     Route: 048
     Dates: start: 20120201
  6. VALIUM [Concomitant]
     Dosage: UNK UKN, UNK
  7. ZOLEDRONOC ACID [Suspect]
     Dosage: 5 MG
     Route: 042
     Dates: start: 20101027

REACTIONS (4)
  - INTERNATIONAL NORMALISED RATIO FLUCTUATION [None]
  - PAIN [None]
  - GINGIVAL PAIN [None]
  - DIARRHOEA [None]
